FAERS Safety Report 16473895 (Version 2)
Quarter: 2019Q3

REPORT INFORMATION
  Report Type: Spontaneous
  Country: CA (occurrence: CA)
  Receive Date: 20190625
  Receipt Date: 20190723
  Transmission Date: 20191004
  Serious: Yes (Other)
  Sender: FDA-Public Use
  Company Number: CA-PFIZER INC-2754448

PATIENT
  Age: 40 Year
  Sex: Female
  Weight: 90 kg

DRUGS (5)
  1. RITUXAN [Suspect]
     Active Substance: RITUXIMAB
     Indication: RHEUMATOID ARTHRITIS
     Dosage: 1000 MG, FREQ: CYCLICAL
     Route: 042
  2. ARAVA [Suspect]
     Active Substance: LEFLUNOMIDE
     Dosage: NOT REPORTED
  3. SYNTHROID [Concomitant]
     Active Substance: LEVOTHYROXINE SODIUM
     Dosage: NOT REPORTED
  4. METHOTREXATE SODIUM. [Suspect]
     Active Substance: METHOTREXATE SODIUM
     Dosage: NOT REPORTED
  5. ALEVE [Suspect]
     Active Substance: NAPROXEN SODIUM
     Dosage: NOT REPORTED

REACTIONS (5)
  - Skin test negative [Unknown]
  - Hypersensitivity [Unknown]
  - Drug intolerance [Unknown]
  - Pharyngeal oedema [Unknown]
  - Condition aggravated [Unknown]
